FAERS Safety Report 4515160-1 (Version None)
Quarter: 2004Q4

REPORT INFORMATION
  Report Type: 
  Country: None (occurrence: None)
  Receive Date: 20041130
  Receipt Date: 20041130
  Transmission Date: 20050328
  Serious: Yes (Death)
  Sender: FDA-Public Use
  Company Number: None

PATIENT
  Age: 57 Year
  Sex: Male
  Weight: 83.9154 kg

DRUGS (2)
  1. CORDARONE [Suspect]
     Indication: ATRIAL FIBRILLATION
     Dates: start: 20011101, end: 20020501
  2. CORDARONE [Suspect]
     Indication: CARDIAC FAILURE CONGESTIVE
     Dates: start: 20011101, end: 20020501

REACTIONS (3)
  - CARDIAC FAILURE CHRONIC [None]
  - COUGH [None]
  - PHARMACEUTICAL PRODUCT COMPLAINT [None]
